FAERS Safety Report 9203233 (Version 1)
Quarter: 2013Q1

REPORT INFORMATION
  Report Type: Spontaneous
  Country: DK (occurrence: None)
  Receive Date: 20130328
  Receipt Date: 20130328
  Transmission Date: 20140127
  Serious: Yes (Hospitalization)
  Sender: FDA-Public Use
  Company Number: VAL_02242_2013

PATIENT
  Age: 40 Year
  Sex: Female

DRUGS (2)
  1. CIBACEN [Suspect]
     Indication: HYPERTENSIVE HEART DISEASE
     Dosage: DF (REGIMEN #1) ORAL)
     Route: 048
     Dates: end: 19960411
  2. CIBACEN [Suspect]
     Indication: NEPHROPATHY
     Dosage: DF (REGIMEN #1) ORAL)
     Route: 048
     Dates: end: 19960411

REACTIONS (1)
  - No adverse event [None]
